FAERS Safety Report 13097155 (Version 1)
Quarter: 2017Q1

REPORT INFORMATION
  Report Type: Spontaneous
  Country: US (occurrence: US)
  Receive Date: 20170107
  Receipt Date: 20170107
  Transmission Date: 20170428
  Serious: No
  Sender: FDA-Public Use
  Company Number: None

PATIENT
  Age: 47 Year
  Sex: Male
  Weight: 79.2 kg

DRUGS (6)
  1. SERTRALINE HCL [Concomitant]
     Active Substance: SERTRALINE HYDROCHLORIDE
  2. CPAP [Concomitant]
     Active Substance: DEVICE
  3. QUETIAPINE FUMARATE. [Concomitant]
     Active Substance: QUETIAPINE FUMARATE
  4. DISULFIRAM. [Concomitant]
     Active Substance: DISULFIRAM
  5. MAXIMUM STRENTH NASAL [Suspect]
     Active Substance: OXYMETAZOLINE HYDROCHLORIDE
     Indication: NASAL CONGESTION
     Dosage: ?          QUANTITY:1 SPRAY(S);OTHER ROUTE:NOSE?
     Dates: start: 20170106, end: 20170106
  6. CARBAMAZEPINE ER [Concomitant]
     Active Substance: CARBAMAZEPINE

REACTIONS (7)
  - Ear pain [None]
  - Nasal obstruction [None]
  - Nasal discomfort [None]
  - Product substitution issue [None]
  - Tenderness [None]
  - Oropharyngeal pain [None]
  - Feeling abnormal [None]

NARRATIVE: CASE EVENT DATE: 20170106
